FAERS Safety Report 7903142-9 (Version None)
Quarter: 2011Q4

REPORT INFORMATION
  Report Type: 
  Country: None (occurrence: None)
  Receive Date: 20111107
  Receipt Date: 20111023
  Transmission Date: 20120403
  Serious: Yes (Other)
  Sender: FDA-Public Use
  Company Number: GB-DEXPHARM-20111545

PATIENT
  Age: 65 Year
  Sex: Male

DRUGS (9)
  1. MOVIPREP [Concomitant]
  2. ACETAMINOPHEN [Concomitant]
  3. DICLOFENAC SODIUM [Suspect]
     Indication: ARTHRITIS
     Dosage: 150 MG MILLIGRAM(S) SEP. DOSAGES / INTERVAL: 1 IN 1 DAY, ORAL
     Route: 048
     Dates: start: 20090801, end: 20110810
  4. GABAPENTIN [Concomitant]
  5. CITALOPRAM HYDROBROMIDE [Concomitant]
  6. OMEPRAZOLE [Suspect]
     Indication: DYSPEPSIA
     Dosage: 20 MG MILLIGRAM(S) SEP. DOSAGES / INTERVAL: 1 IN 1 DAY; ORAL
     Route: 048
     Dates: start: 20090801, end: 20110810
  7. FIBROGEL [Concomitant]
  8. CODEINE SUL TAB [Concomitant]
  9. NORTRIPTYLINE HCL [Concomitant]

REACTIONS (4)
  - VITAMIN B12 DECREASED [None]
  - BLOOD IRON DECREASED [None]
  - SERUM FERRITIN DECREASED [None]
  - BLOOD COUNT ABNORMAL [None]
